FAERS Safety Report 20633089 (Version 2)
Quarter: 2022Q2

REPORT INFORMATION
  Report Type: Spontaneous
  Country: JP (occurrence: JP)
  Receive Date: 20220324
  Receipt Date: 20220407
  Transmission Date: 20220721
  Serious: Yes (Hospitalization)
  Sender: FDA-Public Use
  Company Number: JP-TEVA-2022-JP-2018946

PATIENT
  Age: 53 Year
  Sex: Male
  Weight: 72 kg

DRUGS (4)
  1. CLOPIDOGREL [Suspect]
     Active Substance: CLOPIDOGREL BISULFATE
     Indication: Myocardial infarction
     Route: 065
  2. CLOPIDOGREL [Suspect]
     Active Substance: CLOPIDOGREL BISULFATE
     Indication: Coronary artery disease
  3. ASPIRIN [Suspect]
     Active Substance: ASPIRIN
     Indication: Coronary artery disease
     Route: 065
  4. ASPIRIN [Suspect]
     Active Substance: ASPIRIN
     Indication: Myocardial infarction

REACTIONS (3)
  - Upper gastrointestinal haemorrhage [Recovered/Resolved]
  - Presyncope [Unknown]
  - Anaemia [Recovered/Resolved]
